FAERS Safety Report 5468673-2 (Version None)
Quarter: 2007Q3

REPORT INFORMATION
  Report Type: 
  Country: None (occurrence: None)
  Receive Date: 20070926
  Receipt Date: 20070914
  Transmission Date: 20080115
  Serious: Yes (Death)
  Sender: FDA-Public Use
  Company Number: US-PFIZER INC-2005018645

PATIENT
  Sex: Female
  Weight: 64.2 kg

DRUGS (18)
  1. SILDENAFIL (PAH) [Suspect]
     Indication: PULMONARY HYPERTENSION
     Route: 048
  2. EPOPROSTENOL SODIUM [Concomitant]
     Route: 042
  3. ZOLOFT [Concomitant]
     Route: 048
  4. LASIX [Concomitant]
     Route: 048
  5. MICRO-K [Concomitant]
     Route: 048
  6. BECONASE [Concomitant]
     Route: 045
  7. PREVACID [Concomitant]
     Route: 048
  8. VITAMIN CAP [Concomitant]
     Route: 048
  9. FERROUS SULFATE TAB [Concomitant]
     Route: 048
  10. ZINC [Concomitant]
     Route: 048
  11. ZYRTEC [Concomitant]
     Route: 048
  12. PRAVACHOL [Concomitant]
     Route: 048
  13. WARFARIN SODIUM [Concomitant]
     Route: 048
  14. BEXTRA [Concomitant]
     Route: 048
  15. ADVAIR DISKUS 100/50 [Concomitant]
     Route: 055
  16. TYLENOL (CAPLET) [Concomitant]
     Route: 048
  17. XANAX [Concomitant]
     Route: 048
  18. ULTRAM [Concomitant]
     Route: 048

REACTIONS (9)
  - CARDIAC ARREST [None]
  - DIZZINESS [None]
  - DRUG ADMINISTRATION ERROR [None]
  - FALL [None]
  - FATIGUE [None]
  - HEADACHE [None]
  - HYPOTENSION [None]
  - NASAL CONGESTION [None]
  - VASODILATATION [None]
